FAERS Safety Report 10335541 (Version 1)
Quarter: 2014Q3

REPORT INFORMATION
  Report Type: Report from Study
  Country: US (occurrence: US)
  Receive Date: 20140723
  Receipt Date: 20140723
  Transmission Date: 20150326
  Serious: Yes (Other)
  Sender: FDA-Public Use
  Company Number: PHEH2014US014504

PATIENT
  Sex: Male

DRUGS (3)
  1. GILENYA [Suspect]
     Active Substance: FINGOLIMOD HYDROCHLORIDE
     Indication: MULTIPLE SCLEROSIS
     Dosage: 0.5 MG, QD
     Route: 048
     Dates: start: 201111
  2. ZOLOFT [Suspect]
     Active Substance: SERTRALINE HYDROCHLORIDE
     Dosage: 50 MG, QD
  3. AMPYRA [Suspect]
     Active Substance: DALFAMPRIDINE
     Dosage: 10 MG, QD

REACTIONS (16)
  - Fatigue [Not Recovered/Not Resolved]
  - Micturition disorder [Unknown]
  - Faecal incontinence [Unknown]
  - Gait disturbance [Unknown]
  - Influenza [Unknown]
  - Ataxia [Unknown]
  - Hyperreflexia [Unknown]
  - Bradyphrenia [Unknown]
  - Pyrexia [Unknown]
  - Myelopathy [Unknown]
  - Balance disorder [Not Recovered/Not Resolved]
  - Muscular weakness [Unknown]
  - Monoparesis [Not Recovered/Not Resolved]
  - Multiple sclerosis relapse [Not Recovered/Not Resolved]
  - Nausea [Unknown]
  - Diarrhoea [Unknown]
